FAERS Safety Report 24083041 (Version 2)
Quarter: 2024Q3

REPORT INFORMATION
  Report Type: Spontaneous
  Country: CN (occurrence: CN)
  Receive Date: 20240712
  Receipt Date: 20240730
  Transmission Date: 20241016
  Serious: Yes (Hospitalization)
  Sender: PAREXEL
  Company Number: CN-SHANGHAI JUNSHI BIOSCIENCES CO., LTD.-CN2024010535

PATIENT

DRUGS (1)
  1. TORIPALIMAB [Suspect]
     Active Substance: TORIPALIMAB
     Indication: Transitional cell carcinoma
     Dosage: 240 MG, EVERY 21 DAYS
     Route: 041
     Dates: start: 202403, end: 202406

REACTIONS (2)
  - Myocarditis [Recovering/Resolving]
  - Off label use [Unknown]

NARRATIVE: CASE EVENT DATE: 20240301
